FAERS Safety Report 4976590-7 (Version None)
Quarter: 2006Q2

REPORT INFORMATION
  Report Type: 
  Country: None (occurrence: None)
  Receive Date: 20060419
  Receipt Date: 20050930
  Transmission Date: 20061013
  Serious: Yes (Hospitalization)
  Sender: FDA-Public Use
  Company Number: US-MERCK-0510USA01412

PATIENT
  Age: 65 Year
  Sex: Male
  Weight: 75 kg

DRUGS (5)
  1. VIOXX [Suspect]
     Indication: BACK PAIN
     Route: 048
     Dates: start: 20011101, end: 20030201
  2. ZOCOR [Concomitant]
     Route: 065
  3. ACIPHEX [Concomitant]
     Route: 065
  4. ASPIRIN [Concomitant]
     Route: 065
  5. FOLIC ACID [Concomitant]
     Route: 065

REACTIONS (14)
  - BACK DISORDER [None]
  - CELLULITIS [None]
  - CONSTIPATION [None]
  - DERMATITIS ALLERGIC [None]
  - HAEMATURIA [None]
  - HEADACHE [None]
  - NAUSEA [None]
  - PHARYNGOLARYNGEAL PAIN [None]
  - PROSTATITIS [None]
  - REFLUX OESOPHAGITIS [None]
  - RENAL FAILURE ACUTE [None]
  - UPPER RESPIRATORY TRACT INFECTION [None]
  - URETHRAL STENOSIS [None]
  - URINARY BLADDER POLYP [None]
